FAERS Safety Report 4330125-0 (Version None)
Quarter: 2004Q1

REPORT INFORMATION
  Report Type: 
  Country: None (occurrence: None)
  Receive Date: 20040329
  Receipt Date: 20040129
  Transmission Date: 20041129
  Serious: No
  Sender: FDA-Public Use
  Company Number: 04P-163-0248907-00

PATIENT
  Age: 61 Year
  Sex: Female
  Weight: 49.8957 kg

DRUGS (6)
  1. HUMIRA [Suspect]
     Indication: RHEUMATOID ARTHRITIS
     Dosage: 40 MG, 1 IN 2 WK, SUBCUTANEOUS; 40 MG, 1 IN 1 WK SUBCUTANEOUS
     Route: 058
     Dates: start: 20030224, end: 20030401
  2. HUMIRA [Suspect]
     Indication: RHEUMATOID ARTHRITIS
     Dosage: 40 MG, 1 IN 2 WK, SUBCUTANEOUS; 40 MG, 1 IN 1 WK SUBCUTANEOUS
     Route: 058
     Dates: start: 20031101, end: 20040101
  3. HUMIRA [Suspect]
     Indication: RHEUMATOID ARTHRITIS
     Dosage: 40 MG, 1 IN 2 WK, SUBCUTANEOUS; 40 MG, 1 IN 1 WK SUBCUTANEOUS
     Route: 058
     Dates: start: 20040101
  4. METHOTREXATE SODIUM [Concomitant]
  5. PREDNISONE [Concomitant]
  6. SULFASALAZINE [Concomitant]

REACTIONS (2)
  - DRUG INEFFECTIVE [None]
  - RHINORRHOEA [None]
